FAERS Safety Report 17804224 (Version 4)
Quarter: 2020Q3

REPORT INFORMATION
  Report Type: Report from Study
  Country: CA (occurrence: CA)
  Receive Date: 20200519
  Receipt Date: 20200727
  Transmission Date: 20201102
  Serious: Yes (Hospitalization, Other)
  Sender: FDA-Public Use
  Company Number: CA-JNJFOC-20200510657

PATIENT
  Age: 30 Year
  Sex: Female

DRUGS (1)
  1. REMICADE [Suspect]
     Active Substance: INFLIXIMAB
     Indication: CROHN^S DISEASE
     Dosage: PATIENT RECEIVED THE INFLIXIMAB DOSE ON 22?OCT?2019
     Route: 042
     Dates: start: 20190401

REACTIONS (2)
  - Postoperative abscess [Unknown]
  - Intestinal resection [Recovering/Resolving]

NARRATIVE: CASE EVENT DATE: 20200507
